FAERS Safety Report 15562910 (Version 2)
Quarter: 2018Q4

REPORT INFORMATION
  Report Type: Spontaneous
  Country: FR (occurrence: FR)
  Receive Date: 20181029
  Receipt Date: 20181117
  Transmission Date: 20190205
  Serious: Yes (Hospitalization, Disabling)
  Sender: FDA-Public Use
  Company Number: FR-ANIPHARMA-2018-FR-000170

PATIENT
  Age: 70 Year
  Sex: Female
  Weight: 46 kg

DRUGS (9)
  1. ADROVANCE [Concomitant]
     Active Substance: ALENDRONATE SODIUM\CHOLECALCIFEROL
     Dosage: 70MG /5600 IU AT ONE TABLET
     Route: 065
  2. IMOVANE [Concomitant]
     Active Substance: ZOPICLONE
     Dosage: 3.75 MG AT ONE TABLET ON EVENING
     Route: 065
  3. DOLENIO [Concomitant]
     Active Substance: GLUCOSAMINE
     Dosage: 1178 MG AT ONE ON MORNING
     Route: 065
  4. ZOPLICONE [Concomitant]
     Active Substance: ZOPICLONE
     Dosage: ONE TABLET ON EVENING
     Route: 065
  5. EFFEXOR [Concomitant]
     Active Substance: VENLAFAXINE HYDROCHLORIDE
     Route: 065
  6. ARIMIDEX [Suspect]
     Active Substance: ANASTROZOLE
     Indication: HORMONE THERAPY
     Dosage: 1 MG DAILY
     Route: 048
     Dates: start: 201710, end: 20180317
  7. FEMARA [Suspect]
     Active Substance: LETROZOLE
     Dosage: 2.5 MG DAILY
     Route: 048
     Dates: start: 20180327, end: 201807
  8. NATECAL [Concomitant]
     Active Substance: CALCIUM CARBONATE\CHOLECALCIFEROL
     Dosage: 600 MG /400 IU AT ONE ON MORNING
     Route: 065
  9. ZOPICLONE [Concomitant]
     Active Substance: ZOPICLONE
     Dosage: 3,75 MG AT ONE TABLET IN THE EVENING
     Route: 065

REACTIONS (1)
  - Creutzfeldt-Jakob disease [Recovered/Resolved with Sequelae]

NARRATIVE: CASE EVENT DATE: 20180718
